FAERS Safety Report 21577379 (Version 1)
Quarter: 2022Q4

REPORT INFORMATION
  Report Type: Spontaneous
  Country: ES (occurrence: ES)
  Receive Date: 20221110
  Receipt Date: 20221110
  Transmission Date: 20230112
  Serious: Yes (Hospitalization, Other)
  Sender: FDA-Public Use
  Company Number: None

PATIENT

DRUGS (4)
  1. SUMATRIPTAN SUCCINATE [Suspect]
     Active Substance: SUMATRIPTAN SUCCINATE
     Indication: Headache
     Dosage: 6 MG (ASNECESSARY)
     Route: 058
     Dates: start: 20221030, end: 20221030
  2. ESOMEPRAZOL STADA [Concomitant]
     Indication: Product used for unknown indication
     Dosage: 20 MG, QD
     Route: 048
     Dates: start: 20191001
  3. METAMIZOLE [Concomitant]
     Active Substance: METAMIZOLE
     Indication: Product used for unknown indication
     Dosage: 575 MG, TID
     Route: 048
     Dates: start: 20221022
  4. ANTALGIN (NAPROXEN SODIUM) [Concomitant]
     Indication: Product used for unknown indication
     Dosage: 550 MG, QD
     Route: 048
     Dates: start: 20221021

REACTIONS (2)
  - Angina unstable [Not Recovered/Not Resolved]
  - Chest pain [Recovered/Resolved]

NARRATIVE: CASE EVENT DATE: 20221030
